FAERS Safety Report 16839177 (Version 1)
Quarter: 2019Q3

REPORT INFORMATION
  Report Type: Spontaneous
  Country: PL (occurrence: PL)
  Receive Date: 20190923
  Receipt Date: 20190923
  Transmission Date: 20191005
  Serious: Yes (Other)
  Sender: FDA-Public Use
  Company Number: PL-MYLANLABS-2019M1087838

PATIENT
  Age: 65 Year
  Sex: Female

DRUGS (8)
  1. METAMIZOLE [Suspect]
     Active Substance: METAMIZOLE
     Dosage: 500 MILLIGRAM
  2. TRAMADOL. [Suspect]
     Active Substance: TRAMADOL
     Indication: PAIN
     Dosage: 100 MILLIGRAM, QD
     Route: 065
  3. TRAMADOL. [Suspect]
     Active Substance: TRAMADOL
     Dosage: 37.5 MILLIGRAM
     Route: 065
  4. DICLOFENAC [Suspect]
     Active Substance: DICLOFENAC
     Indication: PAIN
     Dosage: UNK,APPLIED FOR 12 HOURS
     Route: 061
  5. IBUPROFEN. [Suspect]
     Active Substance: IBUPROFEN
     Indication: PAIN
     Dosage: 400 MILLIGRAM
     Route: 065
  6. DICLOFENAC [Suspect]
     Active Substance: DICLOFENAC
     Dosage: 75 MILLIGRAM, BID
     Route: 065
  7. PARACETAMOL [Suspect]
     Active Substance: ACETAMINOPHEN
     Indication: PAIN
     Dosage: 375 MG, QID
     Route: 065
  8. METAMIZOLE [Suspect]
     Active Substance: METAMIZOLE
     Indication: PAIN
     Dosage: 500 MILLIGRAM, TID
     Route: 065

REACTIONS (13)
  - Dyspepsia [Unknown]
  - Intervertebral disc disorder [Unknown]
  - Back pain [Recovering/Resolving]
  - Palpitations [Unknown]
  - Arthropathy [Unknown]
  - Dry mouth [Recovered/Resolved]
  - Abdominal pain [Recovering/Resolving]
  - Bone density decreased [Unknown]
  - Oedema peripheral [Unknown]
  - Osteoarthritis [Unknown]
  - Spinal cord compression [Unknown]
  - Nausea [Recovered/Resolved]
  - Muscle tone disorder [Unknown]
